FAERS Safety Report 19218501 (Version 1)
Quarter: 2021Q2

REPORT INFORMATION
  Report Type: Spontaneous
  Country: US (occurrence: US)
  Receive Date: 20210505
  Receipt Date: 20210505
  Transmission Date: 20210717
  Serious: No
  Sender: FDA-Public Use
  Company Number: US-PFIZER INC-2021464991

PATIENT
  Age: 63 Year
  Sex: Female

DRUGS (1)
  1. XELJANZ [Suspect]
     Active Substance: TOFACITINIB CITRATE
     Indication: PSORIATIC ARTHROPATHY
     Dosage: 5 MG, 2X/DAY
     Route: 048
     Dates: start: 202103

REACTIONS (7)
  - Condition aggravated [Unknown]
  - Abdominal discomfort [Unknown]
  - Pneumonitis [Unknown]
  - Pulmonary pain [Unknown]
  - Osteitis [Unknown]
  - Musculoskeletal chest pain [Unknown]
  - Disease recurrence [Unknown]
